FAERS Safety Report 4588950-7 (Version None)
Quarter: 2005Q1

REPORT INFORMATION
  Report Type: 
  Country: None (occurrence: None)
  Receive Date: 20050216
  Receipt Date: 20050131
  Transmission Date: 20050727
  Serious: Yes (Hospitalization)
  Sender: FDA-Public Use
  Company Number: US_0502111691

PATIENT
  Age: 7 Year
  Sex: Male
  Weight: 38 kg

DRUGS (4)
  1. ZYPREXA [Suspect]
     Indication: BIPOLAR DISORDER
     Dosage: 2.5 MG/1 AT BEDTIME
  2. VALPROIC ACID [Concomitant]
  3. GUANFACINE HCL [Concomitant]
  4. AMPHETAMINE SALTS [Concomitant]

REACTIONS (12)
  - ABDOMINAL PAIN [None]
  - AGGRESSION [None]
  - BODY MASS INDEX INCREASED [None]
  - DECREASED APPETITE [None]
  - DIABETES MELLITUS [None]
  - GLUCOSE URINE PRESENT [None]
  - GLYCOSYLATED HAEMOGLOBIN INCREASED [None]
  - HYPERGLYCAEMIA [None]
  - LETHARGY [None]
  - NOCTURIA [None]
  - URINE KETONE BODY PRESENT [None]
  - WEIGHT INCREASED [None]
